FAERS Safety Report 4737111-7 (Version None)
Quarter: 2005Q3

REPORT INFORMATION
  Report Type: 
  Country: None (occurrence: None)
  Receive Date: 20050728
  Receipt Date: 20050523
  Transmission Date: 20060218
  Serious: No
  Sender: FDA-Public Use
  Company Number: 200514511US

PATIENT
  Age: 26 Year
  Sex: Male
  Weight: 72.7 kg

DRUGS (1)
  1. KETEK [Suspect]
     Indication: SINUSITIS
     Dosage: 800 MG/DAY
     Dates: start: 20050501, end: 20050501

REACTIONS (2)
  - CHEST PAIN [None]
  - PALPITATIONS [None]
